FAERS Safety Report 8971466 (Version 1)
Quarter: 2012Q4

REPORT INFORMATION
  Report Type: 
  Country: US (occurrence: US)
  Receive Date: 20121218
  Receipt Date: 20121218
  Transmission Date: 20130627
  Serious: Yes (Other)
  Sender: FDA-Public Use
  Company Number: PHEH2012US024619

PATIENT
  Sex: Female

DRUGS (30)
  1. DIOVAN [Suspect]
  2. CRESTOR [Concomitant]
  3. NOVOLOG [Concomitant]
  4. ALBUTEROL [Concomitant]
  5. XANAX [Concomitant]
  6. COMBIGAN [Concomitant]
  7. ADVAIR [Concomitant]
  8. VOLTAREN ^NOVARTIS^ [Concomitant]
  9. DEXILANT [Concomitant]
  10. NEXIUM 1-2-3 [Concomitant]
  11. XALATAN [Concomitant]
  12. LIDODERM [Concomitant]
  13. CLARITAB [Concomitant]
  14. SAVELLA [Concomitant]
  15. SINGULAIR [Concomitant]
  16. PATANASE [Concomitant]
  17. PRAVASTATIN [Concomitant]
  18. LYRICA [Concomitant]
  19. TRAMADOL [Concomitant]
  20. TRAZODONE [Concomitant]
  21. TRIAMTERENE [Concomitant]
  22. VALTREX [Concomitant]
  23. VERAPAMIL [Concomitant]
  24. WARFARIN [Concomitant]
  25. CALCIUM [Concomitant]
  26. MULTI-VIT [Concomitant]
  27. VITAMIN E [Concomitant]
  28. HYDROCODIN [Concomitant]
  29. FORCET [Concomitant]
  30. AVELOX [Concomitant]

REACTIONS (9)
  - Atrial fibrillation [Unknown]
  - Osteoarthritis [Unknown]
  - Polyarthritis [Unknown]
  - Skin hyperpigmentation [Unknown]
  - Fibromyalgia [Unknown]
  - Glaucoma [Unknown]
  - Impaired gastric emptying [Unknown]
  - Eye swelling [Unknown]
  - Diplopia [Unknown]
